FAERS Safety Report 21702982 (Version 2)
Quarter: 2023Q1

REPORT INFORMATION
  Report Type: Report from Study
  Country: US (occurrence: None)
  Receive Date: 20221209
  Receipt Date: 20230130
  Transmission Date: 20230418
  Serious: Yes (Other)
  Sender: FDA-Public Use
  Company Number: US-Merck Healthcare KGaA-9370268

PATIENT
  Sex: Female

DRUGS (4)
  1. MAVENCLAD [Suspect]
     Active Substance: CLADRIBINE
     Indication: Multiple sclerosis
     Dosage: YEAR ONE MONTH ONE THERAPY: TWO TABLETS ON DAYS 1 TO 5
     Route: 048
     Dates: start: 20210726, end: 20210730
  2. MAVENCLAD [Suspect]
     Active Substance: CLADRIBINE
     Dosage: YEAR ONE MONTH TWO THERAPY: TWO TABLETS ON DAYS 1 TO 4 AND ONE TABLET ON DAY 5
     Route: 048
     Dates: start: 20210827, end: 20210831
  3. MAVENCLAD [Suspect]
     Active Substance: CLADRIBINE
     Dosage: YEAR TWO MONTH ONE THERAPY: TWO TABLETS ON DAYS 1 TO 5
     Route: 048
     Dates: start: 20220825, end: 20220829
  4. MAVENCLAD [Suspect]
     Active Substance: CLADRIBINE
     Dosage: YEAR TWO MONTH TWO THERAPY: TWO TABLETS ON DAYS 1 TO 4 AND ONE TABLET ON DAY 5
     Route: 048
     Dates: start: 20220921, end: 20220925

REACTIONS (3)
  - Pneumonia [Recovering/Resolving]
  - White blood cell count decreased [Unknown]
  - Multiple sclerosis relapse [Unknown]
